FAERS Safety Report 13349774 (Version 1)
Quarter: 2017Q1

REPORT INFORMATION
  Report Type: Spontaneous
  Country: US (occurrence: US)
  Receive Date: 20170320
  Receipt Date: 20170320
  Transmission Date: 20170429
  Serious: Yes (Hospitalization)
  Sender: FDA-Public Use
  Company Number: US-VALIDUS PHARMACEUTICALS LLC-US-2017VAL000375

PATIENT
  Age: 56 Year
  Sex: Female
  Weight: 77.98 kg

DRUGS (30)
  1. REMIFENTANIL [Concomitant]
     Active Substance: REMIFENTANIL
     Indication: PRODUCT USED FOR UNKNOWN INDICATION
     Dosage: UNK
     Dates: start: 20160930, end: 20160930
  2. LIDOCAINE. [Concomitant]
     Active Substance: LIDOCAINE
     Indication: PRODUCT USED FOR UNKNOWN INDICATION
     Dosage: UNK
     Dates: start: 20160930, end: 20160930
  3. HALDOL [Concomitant]
     Active Substance: HALOPERIDOL
     Indication: PRODUCT USED FOR UNKNOWN INDICATION
     Dosage: UNK
     Dates: start: 20160930, end: 20160930
  4. TOFACITINIB CITRATE [Suspect]
     Active Substance: TOFACITINIB CITRATE
     Dosage: 10 MG, BID
     Route: 048
     Dates: start: 20151106
  5. LORTAB [Suspect]
     Active Substance: ACETAMINOPHEN\HYDROCODONE BITARTRATE
     Indication: OPEN REDUCTION OF FRACTURE
     Dosage: {HYDROCODONE BITARTRATE 5 MG]/[PARACETAMOL 325 MG], PRN
     Route: 048
     Dates: start: 20160930, end: 20161001
  6. NUCYNTA [Concomitant]
     Active Substance: TAPENTADOL HYDROCHLORIDE
     Indication: PRODUCT USED FOR UNKNOWN INDICATION
     Dosage: UNK
     Dates: start: 20160930, end: 20160930
  7. PROPOFOL. [Concomitant]
     Active Substance: PROPOFOL
     Indication: PRODUCT USED FOR UNKNOWN INDICATION
     Dosage: UNK
     Dates: start: 20160930, end: 20160930
  8. VERSED [Suspect]
     Active Substance: MIDAZOLAM HYDROCHLORIDE
     Indication: OPEN REDUCTION OF FRACTURE
     Dosage: 2 MG, 1X
     Route: 042
     Dates: start: 20160930, end: 20160930
  9. CALCIUM CARBONATE AND VITAMIN D [Concomitant]
     Active Substance: CALCIUM CARBONATE\VITAMIN D
     Indication: PRODUCT USED FOR UNKNOWN INDICATION
     Dosage: UNK
     Dates: start: 2013
  10. METHOTREXATE. [Concomitant]
     Active Substance: METHOTREXATE
     Indication: PRODUCT USED FOR UNKNOWN INDICATION
     Dosage: UNK
     Dates: start: 20131003
  11. FOSAMAX [Concomitant]
     Active Substance: ALENDRONATE SODIUM
     Indication: PRODUCT USED FOR UNKNOWN INDICATION
     Dosage: UNK
     Dates: start: 20150420
  12. CEFAZOLIN [Concomitant]
     Active Substance: CEFAZOLIN
     Indication: PRODUCT USED FOR UNKNOWN INDICATION
     Dosage: UNK
     Dates: start: 20160930, end: 20160930
  13. PERCOCET [Suspect]
     Active Substance: ACETAMINOPHEN\OXYCODONE HYDROCHLORIDE
     Indication: ANKLE FRACTURE
     Dosage: 1 TAB [OXYCODONE 10 MG]/ [ACETOMINOPHEN 325MG], PRN
     Route: 048
     Dates: start: 20160929
  14. DILAUDID [Suspect]
     Active Substance: HYDROMORPHONE HYDROCHLORIDE
     Indication: OPEN REDUCTION OF FRACTURE
     Dosage: 0.2 MG, PRN
     Route: 042
     Dates: start: 20160930, end: 20160930
  15. FOLIC ACID. [Concomitant]
     Active Substance: FOLIC ACID
     Indication: PRODUCT USED FOR UNKNOWN INDICATION
     Dosage: UNK
     Dates: start: 20131003
  16. SYNTHROID [Concomitant]
     Active Substance: LEVOTHYROXINE SODIUM
     Indication: PRODUCT USED FOR UNKNOWN INDICATION
     Dosage: UNK
     Dates: start: 198309
  17. SCOPOLAMINE                        /00008701/ [Concomitant]
     Active Substance: SCOPOLAMINE
     Indication: PRODUCT USED FOR UNKNOWN INDICATION
     Dosage: UNK
     Dates: start: 20160930, end: 20160930
  18. TYLENOL [Concomitant]
     Active Substance: ACETAMINOPHEN
     Indication: PRODUCT USED FOR UNKNOWN INDICATION
     Dosage: UNK
     Dates: start: 20160930, end: 20160930
  19. TOFACITINIB CITRATE [Suspect]
     Active Substance: TOFACITINIB CITRATE
     Indication: PSORIATIC ARTHROPATHY
     Dosage: 5 MG, BID
     Route: 048
     Dates: start: 20151010, end: 20151105
  20. MORPHINE SULFATE. [Suspect]
     Active Substance: MORPHINE SULFATE
     Indication: OPEN REDUCTION OF FRACTURE
     Dosage: 2 MG, 1X
     Route: 042
     Dates: start: 20160930, end: 20160930
  21. LYRICA [Concomitant]
     Active Substance: PREGABALIN
     Indication: PRODUCT USED FOR UNKNOWN INDICATION
     Dosage: UNK
     Dates: start: 20160930, end: 20160930
  22. SUFENTA [Concomitant]
     Active Substance: SUFENTANIL CITRATE
     Indication: PRODUCT USED FOR UNKNOWN INDICATION
     Dosage: UNK
     Dates: start: 20160930, end: 20160930
  23. DEXAMETHAZONE [Concomitant]
     Active Substance: DEXAMETHASONE
     Indication: PRODUCT USED FOR UNKNOWN INDICATION
     Dosage: UNK
     Dates: start: 20160930, end: 20160930
  24. ONDANSETRON [Concomitant]
     Active Substance: ONDANSETRON
     Indication: PRODUCT USED FOR UNKNOWN INDICATION
     Dosage: UNK
     Dates: start: 20160930, end: 20160930
  25. DEMEROL [Suspect]
     Active Substance: MEPERIDINE HYDROCHLORIDE
     Indication: OPEN REDUCTION OF FRACTURE
     Dosage: 2 MG, PRN, INTRAVENOUS
     Route: 042
     Dates: start: 20160930, end: 20160930
  26. FENTANYL CITRATE. [Suspect]
     Active Substance: FENTANYL CITRATE
     Indication: OPEN REDUCTION OF FRACTURE
     Dosage: 150 MCG, 1X (SINGLE)
     Route: 042
     Dates: start: 20160930, end: 20160930
  27. ZOFRAN [Concomitant]
     Active Substance: ONDANSETRON HYDROCHLORIDE
     Indication: PRODUCT USED FOR UNKNOWN INDICATION
     Dosage: UNK
     Dates: start: 20160929
  28. CELEBREX [Concomitant]
     Active Substance: CELECOXIB
     Indication: PRODUCT USED FOR UNKNOWN INDICATION
     Dosage: UNK
     Dates: start: 20160930, end: 20160930
  29. EPHEDRINE. [Concomitant]
     Active Substance: EPHEDRINE
     Indication: PRODUCT USED FOR UNKNOWN INDICATION
     Dosage: UNK
     Dates: start: 20160930, end: 20160930
  30. LACTATED RINGERS [Concomitant]
     Active Substance: CALCIUM CHLORIDE\POTASSIUM CHLORIDE\SODIUM CHLORIDE\SODIUM LACTATE
     Indication: PRODUCT USED FOR UNKNOWN INDICATION
     Dosage: UNK
     Dates: start: 20160930, end: 20160930

REACTIONS (3)
  - Supraventricular extrasystoles [Recovered/Resolved]
  - Hypoxia [Recovered/Resolved]
  - Apnoea [Recovered/Resolved]

NARRATIVE: CASE EVENT DATE: 20160930
